FAERS Safety Report 6825657-7 (Version None)
Quarter: 2010Q3

REPORT INFORMATION
  Report Type: 
  Country: None (occurrence: None)
  Receive Date: 20100709
  Receipt Date: 20100630
  Transmission Date: 20110219
  Serious: Yes (Hospitalization)
  Sender: FDA-Public Use
  Company Number: US-BIOGENIDEC-2010BI012078

PATIENT
  Age: 49 Year
  Sex: Male
  Weight: 68 kg

DRUGS (2)
  1. AVONEX [Suspect]
     Indication: MULTIPLE SCLEROSIS
     Route: 030
     Dates: start: 20020405, end: 20030101
  2. AVONEX [Suspect]
     Route: 030
     Dates: start: 20030101

REACTIONS (7)
  - ABDOMINAL PAIN UPPER [None]
  - BLADDER DISORDER [None]
  - DYSURIA [None]
  - FAECALOMA [None]
  - FIBROMYALGIA [None]
  - MUSCLE SPASTICITY [None]
  - SEASONAL ALLERGY [None]
